FAERS Safety Report 19783539 (Version 1)
Quarter: 2021Q3

REPORT INFORMATION
  Report Type: Spontaneous
  Country: US (occurrence: US)
  Receive Date: 20210902
  Receipt Date: 20210902
  Transmission Date: 20211014
  Serious: Yes (Other)
  Sender: FDA-Public Use
  Company Number: None

PATIENT
  Age: 70 Year
  Sex: Female
  Weight: 45 kg

DRUGS (1)
  1. VITAMIN E HUMECTANT VAGINAL CREAM [Suspect]
     Active Substance: .ALPHA.-TOCOPHEROL
     Indication: VULVOVAGINAL DRYNESS
     Route: 067
     Dates: start: 20210901

REACTIONS (5)
  - Mental status changes [None]
  - Screaming [None]
  - Unresponsive to stimuli [None]
  - Agitation [None]
  - Dyskinesia [None]

NARRATIVE: CASE EVENT DATE: 20210901
